FAERS Safety Report 21109861 (Version 2)
Quarter: 2022Q3

REPORT INFORMATION
  Report Type: Spontaneous
  Country: IT (occurrence: None)
  Receive Date: 20220721
  Receipt Date: 20220912
  Transmission Date: 20221027
  Serious: Yes (Hospitalization, Congenital Anomaly)
  Sender: FDA-Public Use
  Company Number: IT-ROCHE-3136730

PATIENT
  Age: 0 Year
  Sex: Male
  Weight: 3.12 kg

DRUGS (1)
  1. OCREVUS [Suspect]
     Active Substance: OCRELIZUMAB
     Indication: Product used for unknown indication
     Route: 064
     Dates: start: 20210813, end: 20210813

REACTIONS (4)
  - Foetal exposure during pregnancy [Unknown]
  - Long QT syndrome [Recovered/Resolved]
  - Pneumothorax [Recovered/Resolved]
  - Pulmonary sepsis [Recovered/Resolved]

NARRATIVE: CASE EVENT DATE: 20220415
